FAERS Safety Report 8373634-X (Version None)
Quarter: 2012Q2

REPORT INFORMATION
  Report Type: 
  Country: None (occurrence: None)
  Receive Date: 20120521
  Receipt Date: 20120208
  Transmission Date: 20120825
  Serious: No
  Sender: FDA-Public Use
  Company Number: US-TEVA-321990USA

PATIENT
  Sex: Male

DRUGS (5)
  1. WARFARIN SODIUM [Concomitant]
  2. ANASTROZOLE [Concomitant]
  3. ALENDRONATE SODIUM [Concomitant]
  4. TREANDA [Suspect]
     Indication: NON-HODGKIN'S LYMPHOMA
     Route: 042
     Dates: start: 20101001, end: 20110301
  5. ACYCLOVIR [Concomitant]

REACTIONS (3)
  - DIARRHOEA [None]
  - VOMITING [None]
  - MALABSORPTION [None]
